FAERS Safety Report 4286577-8 (Version None)
Quarter: 2004Q1

REPORT INFORMATION
  Report Type: 
  Country: None (occurrence: None)
  Receive Date: 20040205
  Receipt Date: 20040122
  Transmission Date: 20041129
  Serious: Yes (Death)
  Sender: FDA-Public Use
  Company Number: 2004S1000209

PATIENT
  Age: 96 Year
  Sex: Female

DRUGS (3)
  1. CLOZAPINE [Suspect]
     Dosage: 25 MG Q AM AND NOON, 50 MG Q HS, ORAL
     Route: 048
     Dates: start: 20030801
  2. ALBUTEROL [Concomitant]
  3. NITROGLYCERIN [Concomitant]

REACTIONS (1)
  - DEMENTIA ALZHEIMER'S TYPE [None]
